FAERS Safety Report 9639729 (Version 1)
Quarter: 2013Q4

REPORT INFORMATION
  Report Type: Spontaneous
  Country: JP (occurrence: JP)
  Receive Date: 20131023
  Receipt Date: 20131023
  Transmission Date: 20140711
  Serious: Yes (Other)
  Sender: FDA-Public Use
  Company Number: JP-BRISTOL-MYERS SQUIBB COMPANY-19607209

PATIENT
  Age: 75 Year
  Sex: Female
  Weight: 71 kg

DRUGS (1)
  1. WARFARIN SODIUM [Suspect]

REACTIONS (1)
  - Cerebrovascular accident [Not Recovered/Not Resolved]
